FAERS Safety Report 21735133 (Version 10)
Quarter: 2023Q1

REPORT INFORMATION
  Report Type: Report from Study
  Country: JP (occurrence: None)
  Receive Date: 20221215
  Receipt Date: 20230203
  Transmission Date: 20230417
  Serious: Yes (Hospitalization)
  Sender: FDA-Public Use
  Company Number: JP-Eisai Medical Research-EC-2022-129899

PATIENT
  Age: 53 Year
  Sex: Female
  Weight: 65.5 kg

DRUGS (9)
  1. LENVATINIB [Suspect]
     Active Substance: LENVATINIB
     Indication: Clear cell renal cell carcinoma
     Route: 048
     Dates: start: 20221129, end: 20221205
  2. QUAVONLIMAB [Suspect]
     Active Substance: QUAVONLIMAB
     Indication: Clear cell renal cell carcinoma
     Dosage: QUAVONLIMAB (MK-1308) 25 MG (+) PEMBROLIZUMAB (MK-3475) 400 MG
     Route: 042
     Dates: start: 20221129, end: 20221129
  3. ESZOPICLONE [Concomitant]
     Active Substance: ESZOPICLONE
     Dates: start: 201701
  4. SENNOSIDES [Concomitant]
     Active Substance: SENNOSIDES
     Dates: start: 201701
  5. FLUTICASONE FUROATE [Concomitant]
     Active Substance: FLUTICASONE FUROATE
     Dates: start: 20220824, end: 20221208
  6. PAROXETINE HYDROCHLORIDE [Concomitant]
     Active Substance: PAROXETINE HYDROCHLORIDE
     Dates: start: 20220913
  7. ACETAMINOPHEN [Concomitant]
     Active Substance: ACETAMINOPHEN
     Dates: start: 20221206, end: 20221208
  8. APRONALIDE\CAFFEINE\IBUPROFEN [Concomitant]
     Active Substance: APRONALIDE\CAFFEINE\IBUPROFEN
     Dates: start: 20221202, end: 20221205
  9. PEMBROLIZUMAB [Suspect]
     Active Substance: PEMBROLIZUMAB

REACTIONS (1)
  - Rash [Recovering/Resolving]

NARRATIVE: CASE EVENT DATE: 20221207
